FAERS Safety Report 18304318 (Version 2)
Quarter: 2021Q1

REPORT INFORMATION
  Report Type: Spontaneous
  Country: US (occurrence: US)
  Receive Date: 20200923
  Receipt Date: 20210119
  Transmission Date: 20210419
  Serious: Yes (Other)
  Sender: FDA-Public Use
  Company Number: US-PFIZER INC-2020365397

PATIENT
  Age: 65 Year
  Sex: Female
  Weight: 55.34 kg

DRUGS (2)
  1. IMITREX [Suspect]
     Active Substance: SUMATRIPTAN SUCCINATE
     Indication: MIGRAINE
     Dosage: ONE, AS NEEDED (ONCE EVERY COUPLE OF WEEKS)
  2. LYRICA [Suspect]
     Active Substance: PREGABALIN
     Indication: FIBROMYALGIA
     Dosage: 75 MG, 2X/DAY
     Route: 048
     Dates: start: 1998

REACTIONS (7)
  - Clavicle fracture [Recovering/Resolving]
  - Drug ineffective [Unknown]
  - Bone pain [Unknown]
  - Underweight [Unknown]
  - Impaired work ability [Unknown]
  - Accident [Unknown]
  - Deafness [Unknown]

NARRATIVE: CASE EVENT DATE: 20191024
